FAERS Safety Report 9385685 (Version 3)
Quarter: 2013Q3

REPORT INFORMATION
  Report Type: Report from Study
  Country: US (occurrence: US)
  Receive Date: 20130705
  Receipt Date: 20130827
  Transmission Date: 20140515
  Serious: Yes (Hospitalization)
  Sender: FDA-Public Use
  Company Number: PHHO2013US008778

PATIENT
  Age: 70 Year
  Sex: Female
  Weight: 64.7 kg

DRUGS (5)
  1. OXALIPLATIN [Suspect]
     Indication: PANCREATIC CARCINOMA
     Dosage: 140 MG, EVERY 3 WEEKS
     Route: 042
     Dates: start: 20130614
  2. FLUOROURACIL [Suspect]
     Indication: PANCREATIC CARCINOMA
     Dosage: 1000 MG, EVERY 3 WEEKS
     Route: 042
     Dates: start: 20130614
  3. INC424 [Suspect]
     Indication: PANCREATIC CARCINOMA
     Route: 048
     Dates: start: 20111130, end: 20130609
  4. COMPARATOR CAPECITABINE [Suspect]
     Indication: PANCREATIC CARCINOMA
     Dosage: 1500 MG, UNK
     Route: 048
     Dates: start: 20111130, end: 20130602
  5. CAMPTOSAR [Suspect]
     Indication: PANCREATIC CARCINOMA
     Dosage: 300 MG, EVERY 3 WEEKS
     Route: 042
     Dates: start: 20130614

REACTIONS (2)
  - Hypoglycaemia [Recovered/Resolved]
  - Diarrhoea [Recovered/Resolved]
